FAERS Safety Report 14063976 (Version 2)
Quarter: 2017Q4

REPORT INFORMATION
  Report Type: Spontaneous
  Country: US (occurrence: US)
  Receive Date: 20171009
  Receipt Date: 20171016
  Transmission Date: 20180321
  Serious: Yes (Death, Other)
  Sender: FDA-Public Use
  Company Number: PHHY2017US146229

PATIENT
  Age: 66 Year
  Sex: Male

DRUGS (4)
  1. CLOZAPINE. [Suspect]
     Active Substance: CLOZAPINE
     Indication: SCHIZOPHRENIA
     Dosage: UNK
     Route: 065
  2. QUETIAPINE. [Suspect]
     Active Substance: QUETIAPINE
     Indication: SCHIZOPHRENIA
     Dosage: UNK
     Route: 065
  3. QUETIAPINE. [Suspect]
     Active Substance: QUETIAPINE
     Dosage: 400 MG, ONCE/SINGLE
     Route: 065
  4. CLOZAPINE. [Suspect]
     Active Substance: CLOZAPINE
     Dosage: 100 MG, Q12H
     Route: 065

REACTIONS (11)
  - Respiratory distress [Unknown]
  - Haematemesis [Fatal]
  - Abdominal distension [Fatal]
  - Acute respiratory distress syndrome [Recovering/Resolving]
  - Abdominal distension [Recovered/Resolved]
  - Faecaloma [Unknown]
  - Shock [Recovering/Resolving]
  - Gastrointestinal necrosis [Fatal]
  - Septic shock [Fatal]
  - Vomiting [Unknown]
  - Aspiration [Unknown]
